FAERS Safety Report 13091908 (Version 1)
Quarter: 2017Q1

REPORT INFORMATION
  Report Type: Spontaneous
  Country: US (occurrence: US)
  Receive Date: 20170105
  Receipt Date: 20170105
  Transmission Date: 20170428
  Serious: Yes (Hospitalization)
  Sender: FDA-Public Use
  Company Number: None

PATIENT
  Age: 55 Year
  Sex: Female

DRUGS (23)
  1. LISINOPRIL. [Concomitant]
     Active Substance: LISINOPRIL
  2. ARAVA [Concomitant]
     Active Substance: LEFLUNOMIDE
  3. PROTONIX [Concomitant]
     Active Substance: PANTOPRAZOLE SODIUM
  4. NORETHINDRONE. [Concomitant]
     Active Substance: NORETHINDRONE
  5. QUETIAPINE. [Concomitant]
     Active Substance: QUETIAPINE
  6. HYDROCO/APAP [Concomitant]
     Active Substance: ACETAMINOPHEN\HYDROCODONE
  7. ORENCIA [Suspect]
     Active Substance: ABATACEPT
     Indication: RHEUMATOID ARTHRITIS
     Route: 058
     Dates: start: 20150306
  8. BUSPIRONE [Concomitant]
     Active Substance: BUSPIRONE HYDROCHLORIDE
  9. OXYCO/APAP [Concomitant]
  10. TIZANIDINE. [Concomitant]
     Active Substance: TIZANIDINE
  11. ESOMEPRAZOLE [Concomitant]
     Active Substance: ESOMEPRAZOLE
  12. PRAMIPEXOLE. [Concomitant]
     Active Substance: PRAMIPEXOLE
  13. DEPLIN [Concomitant]
     Active Substance: LEVOMEFOLATE CALCIUM
  14. ATORVASTATIN [Concomitant]
     Active Substance: ATORVASTATIN
  15. CETIRIZINE [Concomitant]
     Active Substance: CETIRIZINE HYDROCHLORIDE
  16. REQUIP [Concomitant]
     Active Substance: ROPINIROLE HYDROCHLORIDE
  17. FETZIMA [Concomitant]
     Active Substance: LEVOMILNACIPRAN HYDROCHLORIDE
  18. AMITRIPTYLINE [Concomitant]
     Active Substance: AMITRIPTYLINE
  19. METOPROLOL. [Concomitant]
     Active Substance: METOPROLOL
  20. GABAPENTIN. [Concomitant]
     Active Substance: GABAPENTIN
  21. METFORMIN [Concomitant]
     Active Substance: METFORMIN HYDROCHLORIDE
  22. LOSARTAN/HCTZ [Concomitant]
     Active Substance: HYDROCHLOROTHIAZIDE\LOSARTAN
  23. OSPHENA [Concomitant]
     Active Substance: OSPEMIFENE

REACTIONS (2)
  - Drug dose omission [None]
  - Foot operation [None]

NARRATIVE: CASE EVENT DATE: 20161220
